FAERS Safety Report 7371153-0 (Version None)
Quarter: 2011Q1

REPORT INFORMATION
  Report Type: 
  Country: None (occurrence: None)
  Receive Date: 20110324
  Receipt Date: 20100913
  Transmission Date: 20110831
  Serious: Yes (Other)
  Sender: FDA-Public Use
  Company Number: US-BAYER-201029360NA

PATIENT
  Sex: Female
  Weight: 125.17 kg

DRUGS (8)
  1. YAZ [Suspect]
     Indication: PRODUCT USED FOR UNKNOWN INDICATION
     Dosage: UNK
     Dates: start: 20060201, end: 20061215
  2. LORATADINE [Concomitant]
     Indication: MULTIPLE ALLERGIES
     Dosage: UNK
     Dates: start: 20070101, end: 20070901
  3. IBUPROFEN [Concomitant]
     Dosage: UNK
     Dates: start: 20060301
  4. ZYRTEC [Concomitant]
     Dosage: UNK
     Dates: start: 20060101
  5. ZOLOFT [Concomitant]
     Indication: STRESS
     Dosage: UNK
     Dates: start: 20060101, end: 20070301
  6. YASMIN [Suspect]
     Indication: CONTRACEPTION
     Dosage: UNK
     Dates: start: 20060301, end: 20071101
  7. VISTARIL [Concomitant]
     Dosage: UNK
     Dates: start: 20060101
  8. SINGULAIR [Concomitant]
     Dosage: UNK
     Dates: start: 20060101

REACTIONS (4)
  - ABDOMINAL PAIN UPPER [None]
  - ABDOMINAL PAIN [None]
  - CHOLELITHIASIS [None]
  - CHOLECYSTITIS CHRONIC [None]
